FAERS Safety Report 25962268 (Version 2)
Quarter: 2025Q4

REPORT INFORMATION
  Report Type: Report from Study
  Country: CL (occurrence: CL)
  Receive Date: 20251027
  Receipt Date: 20251111
  Transmission Date: 20260117
  Serious: Yes (Hospitalization, Other)
  Sender: ROCHE
  Company Number: CL-ROCHE-10000416419

PATIENT
  Age: 47 Year
  Sex: Female

DRUGS (7)
  1. PHESGO [Suspect]
     Active Substance: HYALURONIDASE-ZZXF\PERTUZUMAB\TRASTUZUMAB
     Indication: HER2 positive breast cancer
     Dosage: LOADING DOSE 1200/600 MG ?FOLLOWING DOSES 600/600 MG
     Route: 058
     Dates: start: 20250604, end: 20250704
  2. PHESGO [Suspect]
     Active Substance: HYALURONIDASE-ZZXF\PERTUZUMAB\TRASTUZUMAB
     Indication: Neoadjuvant therapy
  3. DOCETAXEL [Concomitant]
     Active Substance: DOCETAXEL
     Indication: HER2 positive breast cancer
     Route: 042
     Dates: start: 20250604, end: 20250828
  4. DOCETAXEL [Concomitant]
     Active Substance: DOCETAXEL
     Indication: Neoadjuvant therapy
     Route: 042
     Dates: start: 202510
  5. CARBOPLATIN [Concomitant]
     Active Substance: CARBOPLATIN
     Indication: HER2 positive breast cancer
     Route: 042
     Dates: start: 20250604, end: 20250828
  6. CARBOPLATIN [Concomitant]
     Active Substance: CARBOPLATIN
     Indication: Neoadjuvant therapy
     Route: 042
     Dates: start: 202510
  7. TRAMADOL [Concomitant]
     Active Substance: TRAMADOL

REACTIONS (5)
  - Herpes zoster [Recovered/Resolved]
  - Sciatica [Unknown]
  - Mass [Unknown]
  - Breast mass [Unknown]
  - Breast injury [Unknown]

NARRATIVE: CASE EVENT DATE: 20250722
